FAERS Safety Report 9037854 (Version 1)
Quarter: 2013Q1

REPORT INFORMATION
  Report Type: Report from Study
  Country: US (occurrence: US)
  Receive Date: 20130129
  Receipt Date: 20130129
  Transmission Date: 20140127
  Serious: No
  Sender: FDA-Public Use
  Company Number: US-ABBOTT-11P-163-0844811-00

PATIENT
  Age: 54 Year
  Sex: Male

DRUGS (15)
  1. HUMIRA 40 MG/ 0.8 ML PRE-FILLED SYRINGE [Suspect]
     Indication: PSORIASIS
     Dates: start: 200911
  2. HUMIRA 40 MG/ 0.8 ML PRE-FILLED SYRINGE [Suspect]
  3. HUMIRA 40 MG/ 0.8 ML PRE-FILLED SYRINGE [Suspect]
     Dosage: INTERRUPTED
     Dates: end: 201106
  4. HUMIRA 40 MG/ 0.8 ML PRE-FILLED SYRINGE [Suspect]
     Dates: start: 20110930
  5. METFORMIN [Concomitant]
     Indication: DIABETES MELLITUS
     Dosage: TAKES HALF EVERYDAY
  6. FISH OIL [Concomitant]
     Indication: BLOOD TRIGLYCERIDES
     Route: 048
  7. LONG ACTING INSULIN [Concomitant]
     Indication: GLUCOSE TOLERANCE IMPAIRED
     Dosage: EVERY EVENING AT 6:00 PM
     Dates: start: 20110911
  8. GLIPIZIDE [Concomitant]
     Indication: PRODUCT USED FOR UNKNOWN INDICATION
  9. TRAZODONE [Concomitant]
     Indication: PRODUCT USED FOR UNKNOWN INDICATION
     Dosage: DAILY
  10. TRAMADOL [Concomitant]
     Indication: BREAKTHROUGH PAIN
  11. TRAMADOL [Concomitant]
  12. GABAPENTIN [Concomitant]
     Indication: PRODUCT USED FOR UNKNOWN INDICATION
     Dosage: DAILY
  13. VICODIN [Concomitant]
     Indication: ILL-DEFINED DISORDER
     Dosage: 7.5/500 USES ON TUES, WED, THURS
  14. NOVALOG [Concomitant]
     Indication: PRODUCT USED FOR UNKNOWN INDICATION
     Dosage: 3 UNITS/CARB + 2 U WITH EVERY MEAL
  15. LANTUS [Concomitant]
     Indication: PRODUCT USED FOR UNKNOWN INDICATION
     Dosage: 50 UNITS AT BEDTIME

REACTIONS (18)
  - Psoriasis [Not Recovered/Not Resolved]
  - Musculoskeletal stiffness [None]
  - Sleep disorder [None]
  - Contusion [Not Recovered/Not Resolved]
  - Pain [Not Recovered/Not Resolved]
  - Blood glucose increased [Not Recovered/Not Resolved]
  - Drug ineffective [Not Recovered/Not Resolved]
  - Nasopharyngitis [Not Recovered/Not Resolved]
  - Cough [Not Recovered/Not Resolved]
  - Ill-defined disorder [Unknown]
  - Sinusitis [Recovered/Resolved]
  - Arthralgia [Not Recovered/Not Resolved]
  - Psoriasis [Not Recovered/Not Resolved]
  - Neuralgia [Not Recovered/Not Resolved]
  - Fall [Not Recovered/Not Resolved]
  - Arthritis [Not Recovered/Not Resolved]
  - Insomnia [Not Recovered/Not Resolved]
  - Headache [Not Recovered/Not Resolved]
